FAERS Safety Report 18791303 (Version 49)
Quarter: 2025Q1

REPORT INFORMATION
  Report Type: Report from Study
  Country: US (occurrence: US)
  Receive Date: 20210126
  Receipt Date: 20250226
  Transmission Date: 20250409
  Serious: Yes (Other)
  Sender: TAKEDA
  Company Number: US-TAKEDA-2021TUS003108

PATIENT
  Age: 62 Year
  Sex: Female
  Weight: 91 kg

DRUGS (91)
  1. HUMAN IMMUNOGLOBULIN G [Suspect]
     Active Substance: HUMAN IMMUNOGLOBULIN G
     Indication: Immunodeficiency common variable
     Dosage: 40 GRAM, Q4WEEKS
     Dates: start: 20201230
  2. HUMAN IMMUNOGLOBULIN G [Suspect]
     Active Substance: HUMAN IMMUNOGLOBULIN G
     Indication: Immune system disorder
  3. HUMAN IMMUNOGLOBULIN G [Suspect]
     Active Substance: HUMAN IMMUNOGLOBULIN G
     Indication: Hypergammaglobulinaemia
  4. CUVITRU [Suspect]
     Active Substance: HUMAN IMMUNOGLOBULIN G
     Indication: Immunodeficiency common variable
     Dosage: 35 GRAM, Q2WEEKS
     Dates: start: 20180106
  5. CUVITRU [Suspect]
     Active Substance: HUMAN IMMUNOGLOBULIN G
     Dosage: 40 GRAM, Q2WEEKS
  6. HYQVIA [Suspect]
     Active Substance: HUMAN IMMUNOGLOBULIN G\HYALURONIDASE (HUMAN RECOMBINANT)
     Indication: Hypergammaglobulinaemia
     Dosage: 40 GRAM, Q4WEEKS
     Dates: start: 20250109
  7. INFLUENZA VIRUS VACCINE [Suspect]
     Active Substance: INFLUENZA VIRUS VACCINE
     Indication: Product used for unknown indication
  8. LAMOTRIGINE [Suspect]
     Active Substance: LAMOTRIGINE
     Indication: Product used for unknown indication
  9. BOTOX [Suspect]
     Active Substance: ONABOTULINUMTOXINA
     Indication: Product used for unknown indication
  10. ACETAMINOPHEN [Concomitant]
     Active Substance: ACETAMINOPHEN
  11. EPINEPHRINE [Concomitant]
     Active Substance: EPINEPHRINE
  12. ZYRTEC [Concomitant]
     Active Substance: CETIRIZINE HYDROCHLORIDE
  13. CYMBALTA [Concomitant]
     Active Substance: DULOXETINE HYDROCHLORIDE
  14. Glucosamine + chondroitin + msm [Concomitant]
  15. MIRALAX [Concomitant]
     Active Substance: POLYETHYLENE GLYCOL 3350
  16. TRAZODONE HCL [Concomitant]
     Active Substance: TRAZODONE HYDROCHLORIDE
  17. TIZANIDINE HYDROCHLORIDE [Concomitant]
     Active Substance: TIZANIDINE HYDROCHLORIDE
  18. FIORICET [Concomitant]
     Active Substance: ACETAMINOPHEN\BUTALBITAL\CAFFEINE
  19. SODIUM CHLORIDE [Concomitant]
     Active Substance: SODIUM CHLORIDE
  20. CLONAZEPAM [Concomitant]
     Active Substance: CLONAZEPAM
  21. PREMARIN [Concomitant]
     Active Substance: ESTROGENS, CONJUGATED
  22. IPRATROPIUM BROMIDE [Concomitant]
     Active Substance: IPRATROPIUM BROMIDE
  23. AJOVY [Concomitant]
     Active Substance: FREMANEZUMAB-VFRM
  24. IPRATROPIUM BROMIDE AND ALBUTEROL SULFATE [Concomitant]
     Active Substance: ALBUTEROL SULFATE\IPRATROPIUM BROMIDE
  25. FLONASE ALLERGY RELIEF [Concomitant]
     Active Substance: FLUTICASONE PROPIONATE
  26. ELIQUIS [Concomitant]
     Active Substance: APIXABAN
  27. LIDOCAINE [Concomitant]
     Active Substance: LIDOCAINE
  28. METOPROLOL SUCCINATE [Concomitant]
     Active Substance: METOPROLOL SUCCINATE
  29. LEVOTHYROXINE SODIUM [Concomitant]
     Active Substance: LEVOTHYROXINE SODIUM
  30. GABAPENTIN [Concomitant]
     Active Substance: GABAPENTIN
  31. PREDNISONE [Concomitant]
     Active Substance: PREDNISONE
  32. NYSTATIN\TRIAMCINOLONE [Concomitant]
     Active Substance: NYSTATIN\TRIAMCINOLONE
  33. MOXIFLOXACIN [Concomitant]
     Active Substance: MOXIFLOXACIN
  34. BENADRYL ALLERGY [Concomitant]
     Active Substance: DIPHENHYDRAMINE HYDROCHLORIDE
  35. LIDOCAINE HYDROCHLORIDE [Concomitant]
     Active Substance: LIDOCAINE HYDROCHLORIDE
  36. DIPHENHYDRAMINE HYDROCHLORIDE [Concomitant]
     Active Substance: DIPHENHYDRAMINE HYDROCHLORIDE
  37. ONDANSETRON HYDROCHLORIDE [Concomitant]
     Active Substance: ONDANSETRON HYDROCHLORIDE
  38. HYDROMORPHONE HCL [Concomitant]
     Active Substance: HYDROMORPHONE HYDROCHLORIDE
  39. DICYCLOMINE HYDROCHLORIDE [Concomitant]
     Active Substance: DICYCLOMINE HYDROCHLORIDE
  40. MONTELUKAST SODIUM [Concomitant]
     Active Substance: MONTELUKAST SODIUM
  41. OMEPRAZOLE [Concomitant]
     Active Substance: OMEPRAZOLE
  42. SODIUM CHLORIDE [Concomitant]
     Active Substance: SODIUM CHLORIDE
  43. ROSUVASTATIN CALCIUM [Concomitant]
     Active Substance: ROSUVASTATIN CALCIUM
  44. UBRELVY [Concomitant]
     Active Substance: UBROGEPANT
  45. OXYCODONE [Concomitant]
     Active Substance: OXYCODONE
  46. PROCHLORPERAZINE MALEATE [Concomitant]
     Active Substance: PROCHLORPERAZINE MALEATE
  47. VITAMIN D3 [Concomitant]
     Active Substance: CHOLECALCIFEROL
  48. DIPHENHYDRAMINE [Concomitant]
     Active Substance: DIPHENHYDRAMINE
  49. Coricidin [Concomitant]
  50. NASACORT [Concomitant]
     Active Substance: TRIAMCINOLONE ACETONIDE
  51. NORTRIPTYLINE HYDROCHLORIDE [Concomitant]
     Active Substance: NORTRIPTYLINE HYDROCHLORIDE
  52. NARATRIPTAN HYDROCHLORIDE [Concomitant]
     Active Substance: NARATRIPTAN HYDROCHLORIDE
  53. PERCOCET [Concomitant]
     Active Substance: ACETAMINOPHEN\OXYCODONE HYDROCHLORIDE
  54. TOBRAMYCIN [Concomitant]
     Active Substance: TOBRAMYCIN
  55. GAMUNEX-C [Concomitant]
     Active Substance: HUMAN IMMUNOGLOBULIN G
  56. AIMOVIG [Concomitant]
     Active Substance: ERENUMAB-AOOE
  57. ZOFRAN [Concomitant]
     Active Substance: ONDANSETRON HYDROCHLORIDE
  58. DEXAMETHASONE [Concomitant]
     Active Substance: DEXAMETHASONE
  59. IMITREX [Concomitant]
     Active Substance: SUMATRIPTAN SUCCINATE
  60. LEVALBUTEROL [Concomitant]
     Active Substance: LEVALBUTEROL
  61. SYMBICORT [Concomitant]
     Active Substance: BUDESONIDE\FORMOTEROL FUMARATE DIHYDRATE
  62. ALBUTEROL [Concomitant]
     Active Substance: ALBUTEROL
  63. GENTAMICIN SULFATE [Concomitant]
     Active Substance: GENTAMICIN SULFATE
  64. ESCITALOPRAM [Concomitant]
     Active Substance: ESCITALOPRAM OXALATE
  65. MONTELUKAST [Concomitant]
     Active Substance: MONTELUKAST
  66. MAGNESIUM [Concomitant]
     Active Substance: MAGNESIUM
  67. EMGALITY [Concomitant]
     Active Substance: GALCANEZUMAB-GNLM
  68. FISH OIL [Concomitant]
     Active Substance: FISH OIL
  69. GENTAMICIN [Concomitant]
     Active Substance: GENTAMICIN
  70. AZITHROMYCIN DIHYDROCHLORIDE [Concomitant]
     Active Substance: AZITHROMYCIN DIHYDROCHLORIDE
  71. SIMVASTATIN [Concomitant]
     Active Substance: SIMVASTATIN
  72. BUDESONIDE [Concomitant]
     Active Substance: BUDESONIDE
  73. RIZATRIPTAN [Concomitant]
     Active Substance: RIZATRIPTAN
  74. ATROVENT [Concomitant]
     Active Substance: IPRATROPIUM BROMIDE
  75. CRANBERRY [Concomitant]
     Active Substance: CRANBERRY
  76. TRIAMCINOLONE [Concomitant]
     Active Substance: TRIAMCINOLONE
  77. BROVANA [Concomitant]
     Active Substance: ARFORMOTEROL TARTRATE
  78. AZITHROMYCIN [Concomitant]
     Active Substance: AZITHROMYCIN
  79. ESCITALOPRAM OXALATE [Concomitant]
     Active Substance: ESCITALOPRAM OXALATE
  80. TRIAMCINOLONE ACETONIDE [Concomitant]
     Active Substance: TRIAMCINOLONE ACETONIDE
  81. ALBUTEROL SULFATE [Concomitant]
     Active Substance: ALBUTEROL SULFATE
  82. DOXYCYCLINE [Concomitant]
     Active Substance: DOXYCYCLINE
  83. VITAMIN B2 [Concomitant]
     Active Substance: RIBOFLAVIN
  84. ALBUTEROL\IPRATROPIUM [Concomitant]
     Active Substance: ALBUTEROL\IPRATROPIUM
  85. DIPHENHYDRAMINE HYDROCHLORIDE [Concomitant]
     Active Substance: DIPHENHYDRAMINE HYDROCHLORIDE
  86. OXYCODONE AND ACETAMINOPHEN [Concomitant]
     Active Substance: ACETAMINOPHEN\OXYCODONE HYDROCHLORIDE
  87. VITAMIN B COMPLEX [Concomitant]
     Active Substance: CYANOCOBALAMIN\DEXPANTHENOL\NIACINAMIDE\PYRIDOXINE HYDROCHLORIDE\RIBOFLAVIN 5^-PHOSPHATE SODIUM\THIA
  88. CEPHALEXIN [Concomitant]
     Active Substance: CEPHALEXIN
  89. PREDNISOLONE ACETATE [Concomitant]
     Active Substance: PREDNISOLONE ACETATE
  90. ACETAMINOPHEN\HYDROCODONE [Concomitant]
     Active Substance: ACETAMINOPHEN\HYDROCODONE
  91. SODIUM CHLORIDE [Concomitant]
     Active Substance: SODIUM CHLORIDE

REACTIONS (53)
  - Respiratory tract infection viral [Unknown]
  - Pneumonia viral [Unknown]
  - Cataract [Unknown]
  - Sinus disorder [Unknown]
  - Seasonal allergy [Unknown]
  - Viral infection [Recovered/Resolved]
  - Candida infection [Unknown]
  - Urinary tract infection [Unknown]
  - Weight fluctuation [Unknown]
  - Oxygen saturation abnormal [Unknown]
  - Lung disorder [Unknown]
  - Body height decreased [Unknown]
  - Sinus congestion [Unknown]
  - Illness [Unknown]
  - Nasopharyngitis [Unknown]
  - Musculoskeletal discomfort [Unknown]
  - Concussion [Unknown]
  - Constipation [Unknown]
  - Intervertebral disc protrusion [Unknown]
  - Intervertebral disc compression [Unknown]
  - Back disorder [Unknown]
  - Drug hypersensitivity [Unknown]
  - Fall [Unknown]
  - Irritable bowel syndrome [Recovered/Resolved]
  - Weight decreased [Recovered/Resolved]
  - Productive cough [Recovered/Resolved]
  - Product use in unapproved indication [Unknown]
  - Incorrect drug administration rate [Unknown]
  - Inappropriate schedule of product administration [Unknown]
  - Hypersomnia [Unknown]
  - Gastrointestinal disorder [Unknown]
  - Gastroenteritis viral [Unknown]
  - Ligament sprain [Unknown]
  - Upper respiratory tract infection [Unknown]
  - Sinusitis [Recovered/Resolved]
  - Feeling abnormal [Unknown]
  - Abdominal discomfort [Unknown]
  - Pain [Unknown]
  - Conjunctivitis [Unknown]
  - Influenza like illness [Unknown]
  - Blood pressure increased [Unknown]
  - Cough [Unknown]
  - Muscle twitching [Unknown]
  - Oxygen saturation decreased [Unknown]
  - Hypertension [Unknown]
  - Back pain [Unknown]
  - Arthralgia [Unknown]
  - Pain in extremity [Unknown]
  - Hypotension [Unknown]
  - Dyspnoea [Unknown]
  - Pyrexia [Unknown]
  - Headache [Recovered/Resolved]
  - Migraine [Recovered/Resolved]

NARRATIVE: CASE EVENT DATE: 20201230
